FAERS Safety Report 16737223 (Version 2)
Quarter: 2020Q3

REPORT INFORMATION
  Report Type: Report from Study
  Country: GB (occurrence: GB)
  Receive Date: 20190823
  Receipt Date: 20200715
  Transmission Date: 20201102
  Serious: Yes (Other)
  Sender: FDA-Public Use
  Company Number: GB-MYLANLABS-2019M1078573

PATIENT
  Age: 60 Year
  Sex: Male

DRUGS (4)
  1. COSENTYX [Suspect]
     Active Substance: SECUKINUMAB
     Dosage: 300 MILLIGRAM, MONTHLY (300 MG, QMO)
     Route: 058
  2. DOXYCYCLINE. [Suspect]
     Active Substance: DOXYCYCLINE
     Indication: MALAISE
     Dosage: UNK
     Route: 065
  3. DOXYCYCLINE. [Suspect]
     Active Substance: DOXYCYCLINE
     Indication: LOWER RESPIRATORY TRACT INFECTION
  4. COSENTYX [Suspect]
     Active Substance: SECUKINUMAB
     Indication: PSORIASIS
     Dosage: 300 MG, QW (WEEK 0, 1, 2, 3, 4 ? 300MG, THEN 300MG MONTHLY)
     Route: 058
     Dates: start: 20190308

REACTIONS (7)
  - Vomiting [Not Recovered/Not Resolved]
  - Malaise [Not Recovered/Not Resolved]
  - Nausea [Not Recovered/Not Resolved]
  - Infection [Recovered/Resolved]
  - Lower respiratory tract infection [Not Recovered/Not Resolved]
  - Tremor [Unknown]
  - Somnolence [Unknown]
